FAERS Safety Report 6934474-9 (Version None)
Quarter: 2010Q3

REPORT INFORMATION
  Report Type: 
  Country: None (occurrence: None)
  Receive Date: 20100820
  Receipt Date: 20100720
  Transmission Date: 20110219
  Serious: No
  Sender: FDA-Public Use
  Company Number: US-BAYER-201018571BCC

PATIENT
  Age: 55 Year
  Sex: Female
  Weight: 82 kg

DRUGS (1)
  1. ALEVE (CAPLET) [Suspect]
     Indication: NECK PAIN
     Dosage: TOTAL DAILY DOSE: 660 MG  UNIT DOSE: 220 MG
     Route: 048
     Dates: start: 20100720

REACTIONS (1)
  - NO ADVERSE EVENT [None]
